FAERS Safety Report 6543176-2 (Version None)
Quarter: 2010Q1

REPORT INFORMATION
  Report Type: 
  Country: None (occurrence: None)
  Receive Date: 20100120
  Receipt Date: 20100115
  Transmission Date: 20100710
  Serious: Yes (Other)
  Sender: FDA-Public Use
  Company Number: CHPA2010US01214

PATIENT
  Age: 18 Year
  Sex: Female
  Weight: 72.562 kg

DRUGS (1)
  1. PRIVATE LABEL STRENGTH UNKNOWN (NCH) [Suspect]
     Indication: SMOKING CESSATION THERAPY
     Dosage: UNK, UNK
     Route: 062
     Dates: start: 20050101, end: 20050101

REACTIONS (4)
  - APPLICATION SITE PAIN [None]
  - CAESAREAN SECTION [None]
  - DRUG EXPOSURE DURING PREGNANCY [None]
  - NAUSEA [None]
